FAERS Safety Report 23750093 (Version 1)
Quarter: 2024Q2

REPORT INFORMATION
  Report Type: Spontaneous
  Country: US (occurrence: US)
  Receive Date: 20240417
  Receipt Date: 20240417
  Transmission Date: 20240716
  Serious: No
  Sender: FDA-Public Use
  Company Number: US-TEVA-VS-3178470

PATIENT

DRUGS (1)
  1. METHYLPHENIDATE [Suspect]
     Active Substance: METHYLPHENIDATE
     Indication: Product used for unknown indication
     Dosage: TABLETS-EXTENDED / SUSTAINED RELEASE
     Route: 065

REACTIONS (5)
  - Drug ineffective [Unknown]
  - Irritability [Unknown]
  - Brain fog [Unknown]
  - Disturbance in attention [Unknown]
  - Impaired work ability [Unknown]
